FAERS Safety Report 8350437-3 (Version None)
Quarter: 2012Q2

REPORT INFORMATION
  Report Type: 
  Country: None (occurrence: None)
  Receive Date: 20120510
  Receipt Date: 20120501
  Transmission Date: 20120825
  Serious: Yes (Other)
  Sender: FDA-Public Use
  Company Number: JP-VERTEX PHARMACEUTICALS INC.-AE-2012-004094

PATIENT
  Age: 49 Year
  Sex: Male

DRUGS (11)
  1. PEGINTERFERON ALFA-2A [Concomitant]
     Indication: HEPATITIS C
     Route: 058
     Dates: start: 20120124, end: 20120207
  2. LOXONIN [Concomitant]
     Route: 048
     Dates: start: 20120406
  3. REBAMIPIDE [Concomitant]
     Route: 048
     Dates: start: 20120413
  4. PREDNISOLONE [Concomitant]
     Route: 048
     Dates: start: 20120127, end: 20120129
  5. MUCOSTA [Concomitant]
     Route: 048
     Dates: start: 20120124
  6. REBETOL [Concomitant]
     Route: 048
     Dates: start: 20120224, end: 20120301
  7. LOXONIN [Concomitant]
     Route: 048
     Dates: start: 20120124
  8. TELAVIC (TELAPREVIR) [Suspect]
     Indication: HEPATITIS C
     Route: 048
     Dates: start: 20120124, end: 20120419
  9. PEGINTERFERON ALFA-2A [Concomitant]
     Route: 058
     Dates: start: 20120214
  10. REBETOL [Concomitant]
     Indication: HEPATITIS C
     Route: 048
     Dates: start: 20120124, end: 20120223
  11. REBETOL [Concomitant]
     Route: 048
     Dates: start: 20120302

REACTIONS (1)
  - NEUTROPHIL COUNT DECREASED [None]
